FAERS Safety Report 17461640 (Version 1)
Quarter: 2020Q1

REPORT INFORMATION
  Report Type: Report from Study
  Country: None (occurrence: US)
  Receive Date: 20200226
  Receipt Date: 20200226
  Transmission Date: 20200409
  Serious: Yes (Death, Hospitalization, Other)
  Sender: FDA-Public Use
  Company Number: US-ABBVIE-20K-163-3292694-00

PATIENT
  Sex: Female

DRUGS (1)
  1. HUMIRA [Suspect]
     Active Substance: ADALIMUMAB
     Indication: RHEUMATOID ARTHRITIS
     Route: 058
     Dates: end: 2017

REACTIONS (8)
  - Gastric disorder [Unknown]
  - Nasopharyngitis [Unknown]
  - Intestinal obstruction [Unknown]
  - Obstruction gastric [Unknown]
  - Myocardial infarction [Fatal]
  - Joint dislocation [Unknown]
  - Arthritis [Unknown]
  - Infection [Unknown]

NARRATIVE: CASE EVENT DATE: 2017
